FAERS Safety Report 6113037-1 (Version None)
Quarter: 2009Q1

REPORT INFORMATION
  Report Type: 
  Country: None (occurrence: None)
  Receive Date: 20090312
  Receipt Date: 20090310
  Transmission Date: 20090719
  Serious: Yes (Disabling)
  Sender: FDA-Public Use
  Company Number: D0059459A

PATIENT
  Age: 4 Year
  Sex: Male
  Weight: 23 kg

DRUGS (1)
  1. FLUTIDE [Suspect]
     Dosage: 2UNIT TWICE PER DAY
     Route: 055
     Dates: start: 20080901, end: 20081120

REACTIONS (1)
  - HAIR GROWTH ABNORMAL [None]
